FAERS Safety Report 6158268-X (Version None)
Quarter: 2009Q2

REPORT INFORMATION
  Report Type: 
  Country: None (occurrence: None)
  Receive Date: 20090417
  Receipt Date: 20090414
  Transmission Date: 20091009
  Serious: Yes (Life-Threatening)
  Sender: FDA-Public Use
  Company Number: GB-ASTRAZENECA-2009GB00668

PATIENT
  Age: 25 Year
  Sex: Male
  Weight: 43.7 kg

DRUGS (1)
  1. MERONEM [Suspect]
     Dosage: 2 GRAMS
     Route: 042
     Dates: start: 20080909, end: 20080909

REACTIONS (1)
  - ANAPHYLACTIC REACTION [None]
